FAERS Safety Report 25163517 (Version 1)
Quarter: 2025Q2

REPORT INFORMATION
  Report Type: Report from Study
  Country: US (occurrence: US)
  Receive Date: 20250405
  Receipt Date: 20250405
  Transmission Date: 20250716
  Serious: Yes (Other)
  Sender: ABBVIE
  Company Number: US-ABBVIE-5966983

PATIENT
  Age: 81 Year
  Sex: Male

DRUGS (7)
  1. IMBRUVICA [Suspect]
     Active Substance: IBRUTINIB
     Indication: Chronic lymphocytic leukaemia
     Route: 048
     Dates: start: 20241002
  2. BRUKINSA [Suspect]
     Active Substance: ZANUBRUTINIB
     Indication: Product used for unknown indication
     Route: 065
  3. ELIQUIS [Concomitant]
     Active Substance: APIXABAN
     Indication: Product used for unknown indication
  4. JARDIANCE [Concomitant]
     Active Substance: EMPAGLIFLOZIN
     Indication: Product used for unknown indication
  5. LEVOTHYROXINE [Concomitant]
     Active Substance: LEVOTHYROXINE
     Indication: Product used for unknown indication
     Dosage: 50 MCG
  6. AMIODARONE [Concomitant]
     Active Substance: AMIODARONE
     Indication: Product used for unknown indication
  7. POTASSIUM CHLORIDE [Concomitant]
     Active Substance: POTASSIUM CHLORIDE
     Indication: Product used for unknown indication
     Dosage: TWO ONCE DAILY

REACTIONS (14)
  - Bladder cancer [Unknown]
  - Drug hypersensitivity [Unknown]
  - Anaemia [Unknown]
  - Fatigue [Unknown]
  - Dyspnoea exertional [Unknown]
  - Asthenia [Unknown]
  - Cardiac failure congestive [Unknown]
  - Blood urine present [Unknown]
  - White blood cell count decreased [Unknown]
  - Seasonal allergy [Unknown]
  - Atrial fibrillation [Unknown]
  - Blood urine present [Unknown]
  - Lymphadenopathy [Unknown]
  - Bladder disorder [Unknown]

NARRATIVE: CASE EVENT DATE: 20240101
